FAERS Safety Report 24550982 (Version 1)
Quarter: 2024Q4

REPORT INFORMATION
  Report Type: Spontaneous
  Country: US (occurrence: None)
  Receive Date: 20241025
  Receipt Date: 20241025
  Transmission Date: 20250115
  Serious: No
  Sender: Public
  Company Number: None

PATIENT
  Age: 65 Year
  Sex: Female
  Weight: 80.55 kg

DRUGS (8)
  1. TYRVAYA [Suspect]
     Active Substance: VARENICLINE TARTRATE
     Indication: Dry eye
     Dosage: OTHER QUANTITY : 1 SPRAY(S);?FREQUENCY : TWICE A DAY;?
     Route: 055
  2. ALPHA LIPOIC ACID [Concomitant]
  3. LEVOCARNITINE [Concomitant]
     Active Substance: LEVOCARNITINE
  4. B-6 [Concomitant]
  5. VITAMINS [Concomitant]
     Active Substance: VITAMINS
  6. Fish oil supplement [Concomitant]
  7. CALCIUM +D3 [Concomitant]
  8. RESTASIS [Concomitant]
     Active Substance: CYCLOSPORINE

REACTIONS (1)
  - Neuropathy peripheral [None]

NARRATIVE: CASE EVENT DATE: 20241012
